FAERS Safety Report 10948617 (Version 1)
Quarter: 2015Q1

REPORT INFORMATION
  Report Type: Spontaneous
  Country: US (occurrence: None)
  Receive Date: 20150220
  Receipt Date: 20150220
  Transmission Date: 20150721
  Serious: No
  Sender: FDA-Public Use
  Company Number: 1000072011

PATIENT
  Age: 56 Year
  Sex: Female

DRUGS (4)
  1. SINGULAIR [Concomitant]
     Active Substance: MONTELUKAST SODIUM
  2. TUDORZA PRESSAIR [Suspect]
     Active Substance: ACLIDINIUM BROMIDE
     Indication: ASTHMA
     Dosage: RESPIRATORY (INHALATION)?
     Route: 055
     Dates: start: 20141027
  3. ESOMEPRAZOLE [Concomitant]
     Active Substance: ESOMEPRAZOLE
  4. ALBUTEROL SULFATE (ALBUTAMOL SULFATE) [Concomitant]

REACTIONS (4)
  - Ocular discomfort [None]
  - Intentional product misuse [None]
  - Headache [None]
  - Off label use [None]

NARRATIVE: CASE EVENT DATE: 20141027
